FAERS Safety Report 5197095-7 (Version None)
Quarter: 2007Q1

REPORT INFORMATION
  Report Type: 
  Country: None (occurrence: None)
  Receive Date: 20070103
  Receipt Date: 20061220
  Transmission Date: 20070707
  Serious: Yes (Hospitalization)
  Sender: FDA-Public Use
  Company Number: GB-ELI_LILLY_AND_COMPANY-GB200612003765

PATIENT
  Age: 62 Year
  Sex: Male

DRUGS (6)
  1. GEMCITABINE HCL [Suspect]
     Indication: LUNG NEOPLASM MALIGNANT
     Dates: start: 20061110
  2. CARBOPLATIN [Concomitant]
  3. DICLOFENAC SODIUM [Concomitant]
     Indication: PAIN
     Dosage: 50 MG, 3/D
     Route: 048
  4. VENTOLIN [Concomitant]
     Indication: DYSPNOEA
     Dosage: 200 UG, AS NEEDED
     Route: 055
  5. TEMAZEPAM [Concomitant]
     Indication: INSOMNIA
     Dosage: 10 MG, DAILY (1/D)
     Route: 048
  6. TRAMADOL HCL [Concomitant]
     Indication: PAIN
     Dosage: 50 MG, 4/D
     Route: 048

REACTIONS (7)
  - C-REACTIVE PROTEIN INCREASED [None]
  - DYSURIA [None]
  - EYE PAIN [None]
  - HEADACHE [None]
  - IMMUNOSUPPRESSION [None]
  - PYREXIA [None]
  - VIRAL INFECTION [None]
